FAERS Safety Report 4644381-2 (Version None)
Quarter: 2005Q2

REPORT INFORMATION
  Report Type: 
  Country: None (occurrence: None)
  Receive Date: 20050331
  Receipt Date: 20041216
  Transmission Date: 20051028
  Serious: No
  Sender: FDA-Public Use
  Company Number: 04P-163-0283839-00

PATIENT
  Age: 36 Year
  Sex: Female
  Weight: 109 kg

DRUGS (11)
  1. HUMIRA [Suspect]
     Indication: RHEUMATOID ARTHRITIS
     Dosage: 40 MG, 1 IN 2 WK, SUBCUTANEOUS
     Route: 058
     Dates: start: 20040801
  2. METHOTREXATE [Concomitant]
  3. BACLOFEN [Concomitant]
  4. PREDNISONE [Concomitant]
  5. FOLIC ACID [Concomitant]
  6. EFFEXOR XR [Concomitant]
  7. AMITRIPTYLINE [Concomitant]
  8. ESOMEPRAZOLE [Concomitant]
  9. RANITIDINE HYDROCHLORIDE [Concomitant]
  10. CELECOXIB [Concomitant]
  11. FEXOFENADINE HYDROCHLORIDE [Concomitant]

REACTIONS (2)
  - DRUG INEFFECTIVE [None]
  - HEPATIC ENZYME INCREASED [None]
